FAERS Safety Report 10475794 (Version 1)
Quarter: 2014Q3

REPORT INFORMATION
  Report Type: Spontaneous
  Country: US (occurrence: US)
  Receive Date: 20140925
  Receipt Date: 20140925
  Transmission Date: 20150326
  Serious: No
  Sender: FDA-Public Use
  Company Number: US-GLAXOSMITHKLINE-A1052071A

PATIENT
  Sex: Male

DRUGS (5)
  1. PRILOSEC [Concomitant]
     Active Substance: OMEPRAZOLE MAGNESIUM
  2. COREG [Suspect]
     Active Substance: CARVEDILOL
     Indication: HYPERTENSION
     Dosage: 37.5MG PER DAY
     Route: 048
     Dates: start: 2011
  3. LIPITOR [Concomitant]
     Active Substance: ATORVASTATIN CALCIUM
  4. COUMADIN [Concomitant]
     Active Substance: WARFARIN SODIUM
  5. TRAVATAN [Concomitant]
     Active Substance: TRAVOPROST

REACTIONS (1)
  - Blood pressure increased [Unknown]
